FAERS Safety Report 20920847 (Version 1)
Quarter: 2022Q2

REPORT INFORMATION
  Report Type: Spontaneous
  Country: US (occurrence: None)
  Receive Date: 20220606
  Receipt Date: 20220606
  Transmission Date: 20220721
  Serious: Yes (Other)
  Sender: FDA-Public Use
  Company Number: None

PATIENT
  Age: 2 Year
  Sex: Male
  Weight: 13.95 kg

DRUGS (1)
  1. POLYETHYLENE GLYCOL 3350 [Suspect]
     Active Substance: POLYETHYLENE GLYCOL 3350
     Indication: Constipation
     Dates: start: 20220519, end: 20220605

REACTIONS (5)
  - Inappropriate affect [None]
  - Crying [None]
  - Aggression [None]
  - Affective disorder [None]
  - Abnormal behaviour [None]

NARRATIVE: CASE EVENT DATE: 20220605
